FAERS Safety Report 5116710-7 (Version None)
Quarter: 2006Q3

REPORT INFORMATION
  Report Type: 
  Country: None (occurrence: None)
  Receive Date: 20060928
  Receipt Date: 20060920
  Transmission Date: 20061208
  Serious: Yes (Other)
  Sender: FDA-Public Use
  Company Number: DE-ROCHE-464324

PATIENT
  Sex: Female

DRUGS (2)
  1. XELODA [Suspect]
     Dosage: DAYS 1-14, REPEATED ON DAY 21
     Route: 065
  2. DOCETAXEL [Concomitant]
     Dosage: ON DAYS 1 + 8, REPEATED ON DAY 21

REACTIONS (1)
  - PARALYSIS [None]
